FAERS Safety Report 4661015-1 (Version None)
Quarter: 2005Q2

REPORT INFORMATION
  Report Type: 
  Country: None (occurrence: None)
  Receive Date: 20050511
  Receipt Date: 20050502
  Transmission Date: 20051028
  Serious: Yes (Hospitalization)
  Sender: FDA-Public Use
  Company Number: 2005068906

PATIENT
  Sex: Female

DRUGS (1)
  1. XALATAN [Suspect]
     Indication: ILL-DEFINED DISORDER
     Dosage: OPHTHALMIC

REACTIONS (1)
  - HOSPITALISATION [None]
